FAERS Safety Report 6124731-0 (Version None)
Quarter: 2009Q1

REPORT INFORMATION
  Report Type: 
  Country: None (occurrence: None)
  Receive Date: 20090319
  Receipt Date: 20090309
  Transmission Date: 20090719
  Serious: Yes (Other)
  Sender: FDA-Public Use
  Company Number: TW-TEVA-187203ISR

PATIENT
  Age: 21 Year
  Sex: Male

DRUGS (5)
  1. VINCRISTINE [Suspect]
  2. ETOPOSIDE [Suspect]
  3. CYCLOPHOSPHAMIDE [Suspect]
  4. DACTINOMYCIN [Suspect]
  5. IFOSFAMIDE [Suspect]

REACTIONS (1)
  - HEPATIC VEIN OCCLUSION [None]
